FAERS Safety Report 11729679 (Version 1)
Quarter: 2015Q4

REPORT INFORMATION
  Report Type: Spontaneous
  Country: US (occurrence: US)
  Receive Date: 20151112
  Receipt Date: 20151112
  Transmission Date: 20160304
  Serious: No
  Sender: FDA-Public Use
  Company Number: US-ELI_LILLY_AND_COMPANY-US201510005914

PATIENT
  Sex: Male

DRUGS (4)
  1. CIALIS [Suspect]
     Active Substance: TADALAFIL
     Indication: ERECTILE DYSFUNCTION
     Dosage: 20 MG, PRN
     Route: 065
  2. CIALIS [Suspect]
     Active Substance: TADALAFIL
     Dosage: 5 MG, QD
     Route: 065
     Dates: start: 201509
  3. CIALIS [Suspect]
     Active Substance: TADALAFIL
     Dosage: 10 MG, PRN
     Route: 065
  4. SIMVASTATIN. [Concomitant]
     Active Substance: SIMVASTATIN

REACTIONS (4)
  - Headache [Not Recovered/Not Resolved]
  - Myalgia [Not Recovered/Not Resolved]
  - Drug ineffective [Not Recovered/Not Resolved]
  - Wrong technique in product usage process [Not Recovered/Not Resolved]

NARRATIVE: CASE EVENT DATE: 201506
